FAERS Safety Report 14691166 (Version 1)
Quarter: 2018Q1

REPORT INFORMATION
  Report Type: Spontaneous
  Country: US (occurrence: US)
  Receive Date: 20180327
  Receipt Date: 20180327
  Transmission Date: 20180509
  Serious: Yes (Other)
  Sender: FDA-Public Use
  Company Number: None

PATIENT
  Age: 58 Year
  Sex: Female
  Weight: 49.9 kg

DRUGS (5)
  1. VITAMIN B (VITAMIN B COMPLEX) [Concomitant]
  2. NEUTROGENA RAPID WRINKLE REPAIR NIGHT MOIST 1OZ [Suspect]
     Active Substance: COSMETICS
     Indication: PRODUCT USED FOR UNKNOWN INDICATION
     Route: 061
     Dates: start: 201802, end: 20180223
  3. NEUTROGENA HYDRO BOOST WATER GEL 1.7OZ CREAM [Suspect]
     Active Substance: COSMETICS
     Indication: PRODUCT USED FOR UNKNOWN INDICATION
     Route: 061
     Dates: start: 201802, end: 20180223
  4. NEUTROGENA RAPID TONE REPAIR MOISTURIZER SUNSCREEN BROAD SPECTRUM SPF30 [Suspect]
     Active Substance: AVOBENZONE\HOMOSALATE\OCTISALATE\OCTOCRYLENE
     Indication: PRODUCT USED FOR UNKNOWN INDICATION
     Route: 061
     Dates: start: 201802, end: 20180223
  5. NEUTROGENA RAPID WRINKLE REPAIR SERUM 1OZ CREAM [Suspect]
     Active Substance: COSMETICS
     Indication: PRODUCT USED FOR UNKNOWN INDICATION
     Route: 061
     Dates: start: 201802, end: 20180223

REACTIONS (1)
  - Application site swelling [None]

NARRATIVE: CASE EVENT DATE: 201802
